FAERS Safety Report 16727103 (Version 1)
Quarter: 2019Q3

REPORT INFORMATION
  Report Type: Spontaneous
  Country: MX (occurrence: MX)
  Receive Date: 20190822
  Receipt Date: 20190822
  Transmission Date: 20191005
  Serious: No
  Sender: FDA-Public Use
  Company Number: MX-LUPIN PHARMACEUTICALS INC.-2019-05142

PATIENT
  Sex: Female

DRUGS (2)
  1. EXERAGOT PF [Suspect]
     Active Substance: BIMATOPROST
     Indication: PRODUCT USED FOR UNKNOWN INDICATION
     Dosage: 1 DROP RIGHT EYE
     Route: 047
     Dates: start: 20190730
  2. LUMIGAN [Suspect]
     Active Substance: BIMATOPROST
     Indication: PRODUCT USED FOR UNKNOWN INDICATION
     Dosage: 1 DROP LEFT EYE
     Route: 047
     Dates: start: 20190730

REACTIONS (4)
  - Photophobia [Unknown]
  - Prescription drug used without a prescription [Unknown]
  - Dry eye [Unknown]
  - Ocular hyperaemia [Recovered/Resolved]

NARRATIVE: CASE EVENT DATE: 20190730
